FAERS Safety Report 8893598 (Version 1)
Quarter: 2012Q4

REPORT INFORMATION
  Report Type: 
  Country: US (occurrence: US)
  Receive Date: 20121107
  Receipt Date: 20121107
  Transmission Date: 20130627
  Serious: Yes (Other)
  Sender: FDA-Public Use
  Company Number: US-AMGEN-USASP2011061682

PATIENT
  Sex: Female

DRUGS (2)
  1. ENBREL [Suspect]
     Indication: PSORIASIS
     Dosage: 50 mg, 2 times/wk
     Dates: start: 20110430, end: 201106
  2. ENBREL [Suspect]
     Indication: PSORIATIC ARTHROPATHY

REACTIONS (6)
  - Hypersensitivity [Unknown]
  - Oedema peripheral [Unknown]
  - Eye swelling [Unknown]
  - Psoriasis [Not Recovered/Not Resolved]
  - Rash generalised [Not Recovered/Not Resolved]
  - Injection site rash [Not Recovered/Not Resolved]
